FAERS Safety Report 23740551 (Version 1)
Quarter: 2024Q2

REPORT INFORMATION
  Report Type: Spontaneous
  Country: US (occurrence: US)
  Receive Date: 20240415
  Receipt Date: 20240415
  Transmission Date: 20240715
  Serious: Yes (Hospitalization, Other)
  Sender: FDA-Public Use
  Company Number: US-NOVOPROD-1200339

PATIENT
  Age: 79 Year
  Sex: Male

DRUGS (1)
  1. OZEMPIC [Suspect]
     Active Substance: SEMAGLUTIDE
     Indication: Type 2 diabetes mellitus
     Dosage: 1 MG
     Route: 058
     Dates: start: 2023

REACTIONS (10)
  - Enteritis [Recovering/Resolving]
  - Dehydration [Recovering/Resolving]
  - Renal disorder [Recovering/Resolving]
  - Acute kidney injury [Recovering/Resolving]
  - Fall [Recovered/Resolved]
  - Blood pressure decreased [Unknown]
  - Loss of consciousness [Unknown]
  - Feeding disorder [Unknown]
  - Nausea [Unknown]
  - Vomiting [Unknown]

NARRATIVE: CASE EVENT DATE: 20240327
